FAERS Safety Report 14605227 (Version 2)
Quarter: 2018Q1

REPORT INFORMATION
  Report Type: Report from Study
  Country: GR (occurrence: GR)
  Receive Date: 20180306
  Receipt Date: 20180316
  Transmission Date: 20180509
  Serious: Yes (Death)
  Sender: FDA-Public Use
  Company Number: GR-PFIZER INC-2018090729

PATIENT

DRUGS (4)
  1. VINBLASTINE [Suspect]
     Active Substance: VINBLASTINE
     Indication: MALIGNANT MELANOMA
     Dosage: 6 MG/M2, EVERY 3 WEEKS
     Route: 042
  2. INTERFERON ALFA-2A [Suspect]
     Active Substance: INTERFERON ALFA-2A
     Indication: MALIGNANT MELANOMA
     Dosage: 5000000 IU, ON DAY 2 AND THEN ON MONDAY, WEDNESDAY, AND FRIDAY OF EACH WEEK
     Route: 058
  3. CARBOPLATIN. [Suspect]
     Active Substance: CARBOPLATIN
     Indication: MALIGNANT MELANOMA
     Dosage: 300 MG/M2, EVERY 3 WEEKS
     Route: 042
  4. BLEOMYCIN [Suspect]
     Active Substance: BLEOMYCIN SULFATE
     Indication: MALIGNANT MELANOMA
     Dosage: 30 MG (ON DAY 1) WEEKLY
     Route: 042

REACTIONS (1)
  - Neutropenic sepsis [Fatal]
